FAERS Safety Report 9716682 (Version 1)
Quarter: 2013Q4

REPORT INFORMATION
  Report Type: Spontaneous
  Country: FR (occurrence: FR)
  Receive Date: 20131127
  Receipt Date: 20131127
  Transmission Date: 20140711
  Serious: Yes (Other)
  Sender: FDA-Public Use
  Company Number: FR-PFIZER INC-2013315376

PATIENT
  Age: 88 Year
  Sex: Male

DRUGS (3)
  1. CORDARONE [Suspect]
     Indication: ATRIAL FIBRILLATION
     Dosage: UNK
     Route: 048
     Dates: start: 1993, end: 2013
  2. DIGOXIN [Concomitant]
     Dosage: UNK
  3. VITAMIN B1 [Concomitant]
     Dosage: UNK

REACTIONS (4)
  - Extrapyramidal disorder [Not Recovered/Not Resolved]
  - Speech disorder [Not Recovered/Not Resolved]
  - Tremor [Not Recovered/Not Resolved]
  - Nervous system disorder [Not Recovered/Not Resolved]
